FAERS Safety Report 11063319 (Version 1)
Quarter: 2015Q2

REPORT INFORMATION
  Report Type: Spontaneous
  Country: US (occurrence: US)
  Receive Date: 20150424
  Receipt Date: 20150424
  Transmission Date: 20150821
  Serious: Yes (Other)
  Sender: FDA-Public Use
  Company Number: US-GLAXOSMITHKLINE-A1080942A

PATIENT
  Age: 81 Year
  Sex: Male

DRUGS (4)
  1. ADVAIR HFA [Suspect]
     Active Substance: FLUTICASONE PROPIONATE\SALMETEROL XINAFOATE
     Indication: ASTHMA
     Dosage: 100/50 MCG
     Dates: start: 200806
  2. ADVAIR HFA [Suspect]
     Active Substance: FLUTICASONE PROPIONATE\SALMETEROL XINAFOATE
     Indication: RESPIRATORY DISORDER
     Dosage: 100/50 MCG
     Dates: start: 20090821
  3. AVODART [Suspect]
     Active Substance: DUTASTERIDE
     Indication: PROSTATE CANCER
     Dosage: 0.5 MG
     Dates: start: 20080501
  4. AVODART [Suspect]
     Active Substance: DUTASTERIDE
     Dosage: 0.5 MG, UNK
     Dates: start: 200806

REACTIONS (7)
  - Eye operation [Unknown]
  - Cataract [Unknown]
  - Malaise [Unknown]
  - Eye prosthesis user [Unknown]
  - Adverse event [Unknown]
  - Eye pain [Unknown]
  - Fatigue [Unknown]

NARRATIVE: CASE EVENT DATE: 20150303
